FAERS Safety Report 8020043-9 (Version None)
Quarter: 2012Q1

REPORT INFORMATION
  Report Type: 
  Country: None (occurrence: None)
  Receive Date: 20120103
  Receipt Date: 20111226
  Transmission Date: 20120608
  Serious: Yes (Hospitalization)
  Sender: FDA-Public Use
  Company Number: KR-ELI_LILLY_AND_COMPANY-KR201105000375

PATIENT
  Sex: Female
  Weight: 53 kg

DRUGS (9)
  1. METFORMIN HCL [Concomitant]
     Indication: DIABETES MELLITUS
     Dosage: UNK
  2. PEMETREXED [Suspect]
     Indication: NON-SMALL CELL LUNG CANCER
     Dosage: 765 MG/M2, UNK
     Route: 042
     Dates: start: 20100818
  3. VITAMIN B-12 [Concomitant]
     Dosage: 1 MG, UNK
     Route: 030
     Dates: start: 20100811, end: 20101022
  4. TRIFLUSAL [Concomitant]
     Indication: INFARCTION
     Dosage: UNK
  5. GLIATILIN [Concomitant]
     Indication: INFARCTION
     Dosage: UNK
  6. PEMETREXED [Suspect]
     Dosage: 540 MG, UNK
     Route: 042
  7. FOLIC ACID [Concomitant]
     Dosage: 1 MG, UNK
     Route: 048
     Dates: start: 20100811, end: 20101022
  8. DEXAMETHASONE [Concomitant]
     Dosage: 8 MG, UNK
     Route: 048
     Dates: start: 20100817, end: 20101028
  9. OMACOR [Concomitant]
     Indication: INFARCTION
     Dosage: UNK

REACTIONS (2)
  - CEREBRAL INFARCTION [None]
  - METASTATIC PAIN [None]
